FAERS Safety Report 16897065 (Version 2)
Quarter: 2019Q4

REPORT INFORMATION
  Report Type: Spontaneous
  Country: US (occurrence: US)
  Receive Date: 20191009
  Receipt Date: 20191106
  Transmission Date: 20200122
  Serious: No
  Sender: FDA-Public Use
  Company Number: US-ASTRAZENECA-2019SF36501

PATIENT
  Sex: Male
  Weight: 111.6 kg

DRUGS (1)
  1. BYDUREON [Suspect]
     Active Substance: EXENATIDE
     Indication: INSULIN-REQUIRING TYPE 2 DIABETES MELLITUS
     Route: 058
     Dates: start: 2013

REACTIONS (4)
  - Device issue [Unknown]
  - Injection site pain [Recovering/Resolving]
  - Cellulitis [Recovered/Resolved]
  - Injection site bruising [Recovered/Resolved]
